FAERS Safety Report 11196264 (Version 1)
Quarter: 2015Q2

REPORT INFORMATION
  Report Type: Spontaneous
  Country: AU (occurrence: AU)
  Receive Date: 20150617
  Receipt Date: 20150617
  Transmission Date: 20150821
  Serious: Yes (Life-Threatening)
  Sender: FDA-Public Use
  Company Number: AU-BRISTOL-MYERS SQUIBB COMPANY-BMS-2015-038677

PATIENT
  Age: 62 Year
  Sex: Male

DRUGS (6)
  1. ENOXAPARIN SODIUM. [Concomitant]
     Active Substance: ENOXAPARIN SODIUM
     Indication: ANTICOAGULANT THERAPY
     Dosage: 40 MG, BID
     Route: 065
  2. PROTAMINE SULPHATE [Concomitant]
     Active Substance: PROTAMINE SULFATE
     Indication: PRODUCT USED FOR UNKNOWN INDICATION
     Route: 065
  3. WARFARIN SODIUM. [Suspect]
     Active Substance: WARFARIN SODIUM
     Indication: VENOUS THROMBOSIS
     Dosage: 1.5 MG, QD
     Route: 065
  4. SODIUM HEPARIN [Concomitant]
     Active Substance: HEPARIN SODIUM
     Indication: ANTICOAGULANT THERAPY
     Route: 065
  5. WARFARIN SODIUM. [Suspect]
     Active Substance: WARFARIN SODIUM
     Indication: ARTERIAL THROMBOSIS
  6. PROTHROMBINEX VF [Concomitant]
     Indication: ANTICOAGULANT THERAPY
     Route: 065

REACTIONS (1)
  - Skin necrosis [Unknown]
